FAERS Safety Report 26120033 (Version 2)
Quarter: 2025Q4

REPORT INFORMATION
  Report Type: Spontaneous
  Country: US (occurrence: US)
  Receive Date: 20251204
  Receipt Date: 20251205
  Transmission Date: 20260117
  Serious: Yes (Hospitalization, Other)
  Sender: RANBAXY
  Company Number: US-SUN PHARMACEUTICAL INDUSTRIES INC-2025R1-539242

PATIENT
  Age: 17 Year
  Sex: Female

DRUGS (1)
  1. QUININE [Suspect]
     Active Substance: QUININE
     Indication: Product used for unknown indication
     Dosage: UNK
     Route: 048

REACTIONS (5)
  - Ocular toxicity [Unknown]
  - Intentional overdose [Unknown]
  - Hypoglycaemia [Unknown]
  - Blindness [Recovered/Resolved]
  - Depressed level of consciousness [Unknown]
